FAERS Safety Report 24076628 (Version 4)
Quarter: 2025Q1

REPORT INFORMATION
  Report Type: Spontaneous
  Country: US (occurrence: US)
  Receive Date: 20240711
  Receipt Date: 20250109
  Transmission Date: 20250408
  Serious: No
  Sender: SANOFI AVENTIS
  Company Number: US-SA-SAC20240705000057

PATIENT
  Age: 35 Year
  Sex: Male

DRUGS (4)
  1. DUPIXENT [Suspect]
     Active Substance: DUPILUMAB
     Indication: Dermatitis atopic
     Dosage: 300 MG, QOW
     Route: 058
     Dates: start: 20240405
  2. VITAMIN D [Concomitant]
     Active Substance: VITAMIN D NOS
  3. TRILEPTAL [Concomitant]
     Active Substance: OXCARBAZEPINE
     Dosage: 450 MG, BID
  4. TRILEPTAL [Concomitant]
     Active Substance: OXCARBAZEPINE
     Dosage: 300 MG, BID

REACTIONS (24)
  - Blister [Unknown]
  - Pain [Unknown]
  - Bone disorder [Unknown]
  - Generalised anxiety disorder [Not Recovered/Not Resolved]
  - Oesophageal dilation procedure [Not Recovered/Not Resolved]
  - Hiatus hernia [Not Recovered/Not Resolved]
  - Sciatica [Not Recovered/Not Resolved]
  - Tendonitis [Not Recovered/Not Resolved]
  - Urticaria [Unknown]
  - Stress [Unknown]
  - Gastrooesophageal reflux disease [Unknown]
  - Migraine [Unknown]
  - Skin swelling [Unknown]
  - Blood glucose abnormal [Unknown]
  - Weight decreased [Unknown]
  - Vomiting [Unknown]
  - Insomnia [Unknown]
  - Sinusitis [Unknown]
  - Pruritus [Not Recovered/Not Resolved]
  - Rash [Not Recovered/Not Resolved]
  - Drug ineffective [Unknown]
  - Injection site pain [Not Recovered/Not Resolved]
  - Injection site pruritus [Not Recovered/Not Resolved]
  - Product dose omission in error [Unknown]

NARRATIVE: CASE EVENT DATE: 20240101
